FAERS Safety Report 12473655 (Version 1)
Quarter: 2016Q2

REPORT INFORMATION
  Report Type: Report from Study
  Country: US (occurrence: US)
  Receive Date: 20160616
  Receipt Date: 20160616
  Transmission Date: 20160815
  Serious: Yes (Hospitalization)
  Sender: FDA-Public Use
  Company Number: US-ABBVIE-16K-163-1648341-00

PATIENT
  Age: 71 Year
  Sex: Female

DRUGS (1)
  1. HUMIRA [Suspect]
     Active Substance: ADALIMUMAB
     Indication: RHEUMATOID ARTHRITIS
     Route: 058
     Dates: start: 2009, end: 201605

REACTIONS (6)
  - Eye swelling [Unknown]
  - Fall [Unknown]
  - Pain [Unknown]
  - Dizziness [Unknown]
  - Sjogren^s syndrome [Not Recovered/Not Resolved]
  - Eyelid margin crusting [Unknown]

NARRATIVE: CASE EVENT DATE: 2013
